FAERS Safety Report 4309056-8 (Version None)
Quarter: 2004Q1

REPORT INFORMATION
  Report Type: 
  Country: None (occurrence: None)
  Receive Date: 20040301
  Receipt Date: 20040115
  Transmission Date: 20041129
  Serious: Yes (Hospitalization)
  Sender: FDA-Public Use
  Company Number: F01200400088

PATIENT
  Age: 65 Year
  Sex: Male

DRUGS (4)
  1. (OXALIPLATIN) - SOLUTION - 50 MG/ M2 [Suspect]
     Indication: COLORECTAL CANCER METASTATIC
     Dosage: 50 MG/M2 1/WEEK
     Route: 042
     Dates: start: 20031222, end: 20031222
  2. FLUOROURACIL [Suspect]
     Dosage: 1500 MG/M2 1 / WEEK
     Route: 042
     Dates: start: 20031222, end: 20031222
  3. (FOLINIC ACID) - SOLUTION - 500 MG/M2 [Suspect]
     Dosage: 500 MG / M2 1 / WEEK
     Route: 042
     Dates: start: 20031222, end: 20031222
  4. (CETUXIMAB) - SOLUTION - 250 - MG/M2 [Suspect]
     Indication: COLORECTAL CANCER METASTATIC
     Dosage: 250 MG /M2 1 /WEEK
     Route: 042
     Dates: start: 20031229, end: 20031229

REACTIONS (5)
  - BACTERIA STOOL IDENTIFIED [None]
  - CLOSTRIDIAL INFECTION [None]
  - DEHYDRATION [None]
  - DIARRHOEA [None]
  - MUCOSAL INFLAMMATION [None]
